FAERS Safety Report 23273309 (Version 1)
Quarter: 2023Q4

REPORT INFORMATION
  Report Type: Spontaneous
  Country: CA (occurrence: CA)
  Receive Date: 20231207
  Receipt Date: 20231207
  Transmission Date: 20240109
  Serious: Yes (Other)
  Sender: FDA-Public Use
  Company Number: CA-FreseniusKabi-FK202319825

PATIENT
  Sex: Male

DRUGS (5)
  1. FENTANYL [Suspect]
     Active Substance: FENTANYL\FENTANYL CITRATE
     Indication: Product used for unknown indication
     Dosage: FOA: NOT SPECIFIED.?ROA: UNKNOWN
  2. HYDROMORPHONE HYDROCHLORIDE [Suspect]
     Active Substance: HYDROMORPHONE HYDROCHLORIDE
     Indication: Product used for unknown indication
     Dosage: FOA: PROLONGED-RELEASE TABLET?ROA: ORAL
     Route: 048
  3. HYDROMORPHONE HYDROCHLORIDE [Suspect]
     Active Substance: HYDROMORPHONE HYDROCHLORIDE
     Dosage: FOA: TABLET?ROA: ORAL
     Route: 048
  4. OXYCODONE HYDROCHLORIDE [Suspect]
     Active Substance: OXYCODONE HYDROCHLORIDE
     Indication: Product used for unknown indication
     Dosage: FOA: NOT SPECIFIED?ROA: ORAL
     Route: 048
  5. OXYCONTIN [Suspect]
     Active Substance: OXYCODONE HYDROCHLORIDE
     Indication: Product used for unknown indication
     Dosage: FOA: TABLET (EXTENDED-RELEASE)?ROA: ORAL
     Route: 048

REACTIONS (7)
  - Depression [Unknown]
  - Drug abuse [Unknown]
  - Drug dependence [Unknown]
  - Emotional distress [Unknown]
  - General physical health deterioration [Unknown]
  - Overdose [Unknown]
  - Pain [Unknown]
